FAERS Safety Report 10667518 (Version 1)
Quarter: 2014Q4

REPORT INFORMATION
  Report Type: Spontaneous
  Country: US (occurrence: US)
  Receive Date: 20141222
  Receipt Date: 20141222
  Transmission Date: 20150529
  Serious: No
  Sender: FDA-Public Use
  Company Number: US-MYLANLABS-2014M1011758

PATIENT
  Age: 65 Year
  Sex: Female

DRUGS (7)
  1. FLUMADINE [Concomitant]
     Active Substance: RIMANTADINE HYDROCHLORIDE
     Dosage: 20 MG, UNK
  2. NALTREXONE [Concomitant]
     Active Substance: NALTREXONE
     Dosage: 1.5 MG, TID
  3. IMMUNE SUPPORT [Concomitant]
     Dosage: UNK
  4. ATORVASTATIN CALCIUM TABLETS [Suspect]
     Active Substance: ATORVASTATIN CALCIUM
     Dosage: 20 MG, PM
     Route: 048
     Dates: start: 2012
  5. KLOR-CON [Suspect]
     Active Substance: POTASSIUM CHLORIDE
     Indication: HYPOKALAEMIC SYNDROME
     Dosage: 20 MEQ, QD
     Route: 048
     Dates: start: 201305
  6. FAMCICLOVIR. [Concomitant]
     Active Substance: FAMCICLOVIR
     Dosage: UNK
  7. FLUDROCORTISONE [Concomitant]
     Active Substance: FLUDROCORTISONE
     Dosage: UNK

REACTIONS (7)
  - Facial paresis [Recovered/Resolved]
  - Hypersensitivity [None]
  - Ear pruritus [Not Recovered/Not Resolved]
  - Hot flush [Not Recovered/Not Resolved]
  - Rash [Recovered/Resolved]
  - Pruritus [Recovered/Resolved]
  - Erythema [Recovered/Resolved]

NARRATIVE: CASE EVENT DATE: 201410
